FAERS Safety Report 10190100 (Version 1)
Quarter: 2014Q2

REPORT INFORMATION
  Report Type: Spontaneous
  Country: GB (occurrence: GB)
  Receive Date: 20140522
  Receipt Date: 20140522
  Transmission Date: 20141212
  Serious: Yes (Other)
  Sender: FDA-Public Use
  Company Number: GB-MYLANLABS-2014S1011097

PATIENT
  Age: 3 Decade
  Sex: Male

DRUGS (4)
  1. KETAMINE [Suspect]
     Indication: DRUG ABUSE
     Dosage: APPROXIMATELY WEEKLY BASIS
     Route: 065
  2. KETAMINE [Suspect]
     Indication: OFF LABEL USE
     Dosage: APPROXIMATELY WEEKLY BASIS
     Route: 065
  3. TRAZODONE [Concomitant]
     Indication: DEPRESSION
     Route: 065
  4. ALIMEMAZINE [Concomitant]
     Indication: INSOMNIA
     Route: 065

REACTIONS (3)
  - Bladder wall calcification [Recovering/Resolving]
  - Drug abuse [Unknown]
  - Reduced bladder capacity [Unknown]
